FAERS Safety Report 5901954-4 (Version None)
Quarter: 2008Q3

REPORT INFORMATION
  Report Type: 
  Country: None (occurrence: None)
  Receive Date: 20080929
  Receipt Date: 20080813
  Transmission Date: 20090109
  Serious: No
  Sender: FDA-Public Use
  Company Number: US-BRISTOL-MYERS SQUIBB COMPANY-14300545

PATIENT
  Age: 55 Year
  Sex: Female

DRUGS (3)
  1. BUSPAR [Suspect]
     Dates: start: 20080401
  2. TRAZODONE HCL [Suspect]
     Dates: start: 20080805
  3. PRISTIQ [Suspect]
     Dates: start: 20080805

REACTIONS (5)
  - DIARRHOEA [None]
  - DYSPNOEA [None]
  - HEART RATE INCREASED [None]
  - NAUSEA [None]
  - PALPITATIONS [None]
